FAERS Safety Report 20441247 (Version 2)
Quarter: 2022Q1

REPORT INFORMATION
  Report Type: Spontaneous
  Country: TR (occurrence: TR)
  Receive Date: 20220208
  Receipt Date: 20220222
  Transmission Date: 20220423
  Serious: Yes (Death, Hospitalization, Other)
  Sender: FDA-Public Use
  Company Number: TR-NOVOPROD-831240

PATIENT
  Age: 83 Year
  Sex: Female
  Weight: 55 kg

DRUGS (14)
  1. XARELTO [Concomitant]
     Active Substance: RIVAROXABAN
     Indication: Coagulation factor deficiency
     Dosage: 15 MG, QD(FOR 10 YEARS)
     Route: 048
  2. ANTI-ASIDOZ [Concomitant]
     Indication: Product used for unknown indication
     Dosage: 500 MG, BID(FOR 4 YEARS)
     Route: 048
  3. DAFLON [BIOFLAVONOIDS NOS;DIOSMIN;HESPERIDIN] [Concomitant]
     Indication: Product used for unknown indication
     Dosage: 500 MG, BID(FOR 4 YEARS)
     Route: 048
  4. FIX AT [Concomitant]
     Indication: Product used for unknown indication
     Dosage: 950 MG, BID(FOR 4 YEARS)
     Route: 048
  5. TRANKO-BUSKAS [Concomitant]
     Indication: Depression
     Dosage: 10 MG, QD(FOR 1 YEAR)
     Route: 065
  6. LEVEMIR [Suspect]
     Active Substance: INSULIN DETEMIR
     Indication: Diabetes mellitus
     Dosage: 10 IU, QD
     Route: 058
     Dates: start: 20210703
  7. LEVEMIR [Suspect]
     Active Substance: INSULIN DETEMIR
     Dosage: 8 IU, QD
     Route: 058
  8. VENLAFAXINE HYDROCHLORIDE [Concomitant]
     Active Substance: VENLAFAXINE HYDROCHLORIDE
     Indication: Product used for unknown indication
     Dosage: 75 MG, BID(FOR 8 YEARS)
     Route: 065
  9. CRESTOR [Concomitant]
     Active Substance: ROSUVASTATIN CALCIUM
     Indication: Product used for unknown indication
     Dosage: 10 MG, QD(FOR 10 YEARS)
     Route: 065
  10. ALLOPURINOL [Concomitant]
     Active Substance: ALLOPURINOL
     Indication: Product used for unknown indication
     Dosage: 300 MG, QD(FOR 3 YEARS)
     Route: 065
  11. SEREX [KETOCONAZOLE] [Concomitant]
     Indication: Product used for unknown indication
     Dosage: 100 MG, QD(FOR 6 YEARS)
     Route: 065
  12. NORVASC [Concomitant]
     Active Substance: AMLODIPINE BESYLATE
     Indication: Hypertension
     Dosage: 10 MG, QD(FOR 8 YEARS)
     Route: 065
  13. BENSERAZIDE HYDROCHLORIDE\LEVODOPA [Concomitant]
     Active Substance: BENSERAZIDE HYDROCHLORIDE\LEVODOPA
     Indication: Product used for unknown indication
     Dosage: 125 MG, BID(FOR 4 YEARS)
     Route: 065
  14. DEMAX [Concomitant]
     Indication: Product used for unknown indication
     Dosage: 10 MG, QD(FOR 4 YEARS)
     Route: 065

REACTIONS (5)
  - Pancreatic carcinoma [Fatal]
  - Sepsis [Unknown]
  - Weight decreased [Not Recovered/Not Resolved]
  - Blood glucose decreased [Recovered/Resolved]
  - Blood glucose abnormal [Not Recovered/Not Resolved]

NARRATIVE: CASE EVENT DATE: 20210703
